FAERS Safety Report 5711604-8 (Version None)
Quarter: 2008Q2

REPORT INFORMATION
  Report Type: 
  Country: None (occurrence: None)
  Receive Date: 20080416
  Receipt Date: 20080403
  Transmission Date: 20081010
  Serious: Yes (Hospitalization)
  Sender: FDA-Public Use
  Company Number: LTI2008A00094

PATIENT
  Age: 64 Year
  Sex: Male

DRUGS (7)
  1. ACTOS [Suspect]
     Indication: TYPE 2 DIABETES MELLITUS
     Dosage: 45 MG (45 MG, 1 IN 1 D)
     Route: 048
     Dates: start: 20080401
  2. METFORMIN HCL [Concomitant]
  3. DIAMICRON (GLUCLAZIDE) [Concomitant]
  4. HYTACAND (HYDROCHLOROTHIAZIDE, CANDESARTAN CILEXETIL) [Concomitant]
  5. ATORVASTATIN CALCIUM [Concomitant]
  6. ASPIRIN [Concomitant]
  7. PLAVIX [Concomitant]

REACTIONS (3)
  - CARDIAC MURMUR [None]
  - CORONARY ARTERY STENOSIS [None]
  - EXERCISE ELECTROCARDIOGRAM ABNORMAL [None]
